FAERS Safety Report 15901031 (Version 4)
Quarter: 2019Q3

REPORT INFORMATION
  Report Type: Spontaneous
  Country: US (occurrence: US)
  Receive Date: 20190201
  Receipt Date: 20190930
  Transmission Date: 20191004
  Serious: Yes (Other)
  Sender: FDA-Public Use
  Company Number: US-PFIZER INC-2019049784

PATIENT
  Age: 34 Year
  Sex: Female
  Weight: 65 kg

DRUGS (2)
  1. IBRANCE [Suspect]
     Active Substance: PALBOCICLIB
     Indication: BREAST CANCER METASTATIC
     Dosage: 125 MG, CYCLIC (D 1-21 Q28 DAYS)
     Route: 048
     Dates: start: 20190115
  2. XGEVA [Concomitant]
     Active Substance: DENOSUMAB
     Dosage: UNK, MONTHLY

REACTIONS (8)
  - Headache [Unknown]
  - Nausea [Unknown]
  - Pain in jaw [Not Recovered/Not Resolved]
  - Injection site pain [Unknown]
  - Increased tendency to bruise [Unknown]
  - Dehydration [Unknown]
  - Anaemia [Unknown]
  - Constipation [Unknown]

NARRATIVE: CASE EVENT DATE: 2019
